FAERS Safety Report 4420513-6 (Version None)
Quarter: 2004Q3

REPORT INFORMATION
  Report Type: 
  Country: None (occurrence: None)
  Receive Date: 20040809
  Receipt Date: 20040322
  Transmission Date: 20050211
  Serious: No
  Sender: FDA-Public Use
  Company Number: US-GLAXOSMITHKLINE-A0503807A

PATIENT
  Age: 6 Year
  Sex: Female

DRUGS (1)
  1. PAXIL CR [Suspect]
     Dosage: 12.5MG AT NIGHT
     Route: 048
     Dates: start: 20040315

REACTIONS (1)
  - PERSONALITY CHANGE [None]
